FAERS Safety Report 8963410 (Version 1)
Quarter: 2012Q4

REPORT INFORMATION
  Report Type: 
  Country: CN (occurrence: CN)
  Receive Date: 20121213
  Receipt Date: 20121213
  Transmission Date: 20130627
  Serious: Yes (Hospitalization, Other)
  Sender: FDA-Public Use
  Company Number: PHHY2012CN108553

PATIENT
  Age: 70 Year
  Sex: Female
  Weight: 64 kg

DRUGS (1)
  1. LESCOL [Suspect]
     Dosage: 40 mg, QD
     Route: 048
     Dates: start: 20100929, end: 20101013

REACTIONS (5)
  - Chromaturia [Unknown]
  - Fatigue [Unknown]
  - Decreased appetite [Unknown]
  - Hepatic function abnormal [Recovering/Resolving]
  - Jaundice [Recovering/Resolving]
